FAERS Safety Report 12985433 (Version 1)
Quarter: 2016Q4

REPORT INFORMATION
  Report Type: Spontaneous
  Country: GB (occurrence: GB)
  Receive Date: 20161130
  Receipt Date: 20161130
  Transmission Date: 20170207
  Serious: Yes (Hospitalization)
  Sender: FDA-Public Use
  Company Number: GB-DEXPHARM-20162283

PATIENT
  Age: 80 Year
  Sex: Female
  Weight: 62 kg

DRUGS (9)
  1. METFORMIN [Concomitant]
     Active Substance: METFORMIN HYDROCHLORIDE
  2. OMEPRAZOLE. [Suspect]
     Active Substance: OMEPRAZOLE
     Dosage: DAILY DOSE: 20 MG MILLGRAM(S) EVERY DAYS
     Route: 048
     Dates: start: 20161025, end: 20161114
  3. BEZAFIBRATE [Concomitant]
     Active Substance: BEZAFIBRATE
  4. CO-AMOXICLAV [Concomitant]
     Active Substance: AMOXICILLIN\CLAVULANIC ACID
  5. ASPIRIN. [Concomitant]
     Active Substance: ASPIRIN
  6. ATENOLOL. [Concomitant]
     Active Substance: ATENOLOL
  7. LANTUS [Concomitant]
     Active Substance: INSULIN GLARGINE
  8. ISOSORBIDE. [Concomitant]
     Active Substance: ISOSORBIDE
  9. SERTRALINE [Concomitant]
     Active Substance: SERTRALINE HYDROCHLORIDE

REACTIONS (1)
  - Tubulointerstitial nephritis [Unknown]

NARRATIVE: CASE EVENT DATE: 20161111
